FAERS Safety Report 12728150 (Version 1)
Quarter: 2016Q3

REPORT INFORMATION
  Report Type: Spontaneous
  Country: US (occurrence: US)
  Receive Date: 20160909
  Receipt Date: 20160909
  Transmission Date: 20161109
  Serious: No
  Sender: FDA-Public Use
  Company Number: US-BECTON DICKINSON-2016BDN00273

PATIENT
  Sex: Female

DRUGS (1)
  1. CHLORAPREP WITH TINT [Suspect]
     Active Substance: CHLORHEXIDINE GLUCONATE\ISOPROPYL ALCOHOL
     Dosage: UNK UNK, ONCE
     Dates: start: 20151116, end: 20151116

REACTIONS (4)
  - Occupational exposure to product [Recovered/Resolved]
  - Accidental exposure to product [Recovered/Resolved]
  - Product package associated injury [None]
  - Corneal abrasion [Recovered/Resolved]

NARRATIVE: CASE EVENT DATE: 20151116
